FAERS Safety Report 11764443 (Version 1)
Quarter: 2015Q4

REPORT INFORMATION
  Report Type: Spontaneous
  Country: US (occurrence: US)
  Receive Date: 20151120
  Receipt Date: 20151120
  Transmission Date: 20160304
  Serious: No
  Sender: FDA-Public Use
  Company Number: US-ELI_LILLY_AND_COMPANY-US201301000280

PATIENT
  Sex: Female
  Weight: 83.4 kg

DRUGS (2)
  1. FORTEO [Suspect]
     Active Substance: TERIPARATIDE
     Indication: OSTEOPOROSIS
     Dosage: UNK, QD
     Route: 058
     Dates: start: 2012
  2. FORTEO [Suspect]
     Active Substance: TERIPARATIDE
     Dosage: UNK, QD
     Route: 058

REACTIONS (6)
  - Arthralgia [Unknown]
  - Nausea [Unknown]
  - Injection site pain [Unknown]
  - Malaise [Unknown]
  - Pain in extremity [Unknown]
  - Dizziness [Unknown]
